FAERS Safety Report 15210563 (Version 1)
Quarter: 2018Q3

REPORT INFORMATION
  Report Type: Spontaneous
  Country: US (occurrence: US)
  Receive Date: 20180629
  Receipt Date: 20180629
  Transmission Date: 20181010
  Serious: Yes (Disabling)
  Sender: FDA-Public Use
  Company Number: None

PATIENT
  Age: 59 Year
  Sex: Female
  Weight: 81 kg

DRUGS (2)
  1. CIPROFLOXACIN. [Suspect]
     Active Substance: CIPROFLOXACIN
     Indication: DIVERTICULITIS
     Dosage: ?          QUANTITY:1 TABLET(S);?
     Route: 048
     Dates: start: 20180605, end: 20180615
  2. LEVOTHYROXINE. [Concomitant]
     Active Substance: LEVOTHYROXINE

REACTIONS (10)
  - Insomnia [None]
  - Suicidal ideation [None]
  - Tendon pain [None]
  - Muscle spasms [None]
  - Heart rate increased [None]
  - Headache [None]
  - Arthralgia [None]
  - Tremor [None]
  - Depression [None]
  - Pain [None]

NARRATIVE: CASE EVENT DATE: 20180607
